FAERS Safety Report 14206902 (Version 1)
Quarter: 2017Q4

REPORT INFORMATION
  Report Type: Spontaneous
  Country: BE (occurrence: BE)
  Receive Date: 20171121
  Receipt Date: 20171121
  Transmission Date: 20180321
  Serious: Yes (Hospitalization, Other)
  Sender: FDA-Public Use
  Company Number: BE-ACCORD-061226

PATIENT
  Age: 65 Year
  Sex: Male

DRUGS (3)
  1. CICLOSPORIN [Suspect]
     Active Substance: CYCLOSPORINE
     Indication: IMMUNOSUPPRESSION
  2. MYCOPHENOLIC ACID. [Suspect]
     Active Substance: MYCOPHENOLIC ACID
     Indication: IMMUNOSUPPRESSION
  3. METHYLPREDNISOLONE. [Suspect]
     Active Substance: METHYLPREDNISOLONE
     Indication: IMMUNOSUPPRESSION

REACTIONS (7)
  - Septic shock [Recovered/Resolved]
  - Oral herpes [Unknown]
  - Pneumonia [Unknown]
  - Pleural effusion [Unknown]
  - Enterococcal infection [Unknown]
  - Acute respiratory distress syndrome [Recovering/Resolving]
  - Acute kidney injury [Unknown]
